FAERS Safety Report 4611008-5 (Version None)
Quarter: 2005Q1

REPORT INFORMATION
  Report Type: 
  Country: None (occurrence: None)
  Receive Date: 20050316
  Receipt Date: 20050316
  Transmission Date: 20050727
  Serious: Yes (Hospitalization)
  Sender: FDA-Public Use
  Company Number: None

PATIENT
  Sex: Male

DRUGS (2)
  1. FLUOROURACIL [Suspect]
  2. RADIOTHERAPY [Suspect]

REACTIONS (2)
  - DYSPHONIA [None]
  - HYPOAESTHESIA [None]
